FAERS Safety Report 13290336 (Version 1)
Quarter: 2017Q1

REPORT INFORMATION
  Report Type: Spontaneous
  Country: US (occurrence: US)
  Receive Date: 20170302
  Receipt Date: 20170302
  Transmission Date: 20170428
  Serious: Yes (Other)
  Sender: FDA-Public Use
  Company Number: US-FRESENIUS KABI-FK201701726

PATIENT
  Age: 30 Year
  Sex: Female

DRUGS (5)
  1. EPHEDRINE. [Suspect]
     Active Substance: EPHEDRINE
     Route: 065
  2. TERBUTALINE INJECTION (MANUFACTURER UNKNOWN) TERBUTALINE SULFATE) (TERBUTALINE SULFATE) [Suspect]
     Active Substance: TERBUTALINE
     Indication: TOCOLYSIS
     Route: 065
  3. EPHEDRINE. [Suspect]
     Active Substance: EPHEDRINE
     Indication: RESUSCITATION
     Route: 065
  4. NITROGLYCERINE [Suspect]
     Active Substance: NITROGLYCERIN
     Indication: HYPERTENSION
     Route: 065
  5. NITROGLYCERINE [Suspect]
     Active Substance: NITROGLYCERIN
     Indication: TOCOLYSIS

REACTIONS (3)
  - Exposure during pregnancy [Recovered/Resolved]
  - Pulmonary oedema [Recovered/Resolved]
  - Product use issue [Recovered/Resolved]
